FAERS Safety Report 7216545-5 (Version None)
Quarter: 2011Q1

REPORT INFORMATION
  Report Type: 
  Country: None (occurrence: None)
  Receive Date: 20110109
  Receipt Date: 20110105
  Transmission Date: 20110831
  Serious: Yes (Life-Threatening)
  Sender: FDA-Public Use
  Company Number: DE-AMGEN-DEUSP2011000630

PATIENT

DRUGS (3)
  1. METHOTREXATE [Concomitant]
     Dosage: 15 MG, WEEKLY
     Route: 058
     Dates: start: 20040101
  2. ENBREL [Suspect]
     Dosage: 50 MG, EVERY 2 WEEKS
     Route: 058
     Dates: start: 20090801
  3. ENBREL [Suspect]
     Indication: PRODUCT USED FOR UNKNOWN INDICATION
     Dosage: 50 MG, WEEKLY
     Route: 058
     Dates: start: 20081001, end: 20090801

REACTIONS (1)
  - SUPERFICIAL SPREADING MELANOMA STAGE UNSPECIFIED [None]
